FAERS Safety Report 25537852 (Version 6)
Quarter: 2025Q3

REPORT INFORMATION
  Report Type: Report from Study
  Country: KR (occurrence: KR)
  Receive Date: 20250710
  Receipt Date: 20250930
  Transmission Date: 20251021
  Serious: Yes (Death, Hospitalization, Other)
  Sender: BAXTER
  Company Number: KR-BAXTER-2025BAX017868

PATIENT
  Age: 73 Year
  Sex: Female
  Weight: 50 kg

DRUGS (7)
  1. CYCLOPHOSPHAMIDE [Suspect]
     Active Substance: CYCLOPHOSPHAMIDE
     Indication: Diffuse large B-cell lymphoma
     Dosage: 1100 MG, EVERY 3 WK
     Route: 042
     Dates: start: 20230920, end: 20240104
  2. DOXORUBICIN [Suspect]
     Active Substance: DOXORUBICIN
     Indication: Diffuse large B-cell lymphoma
     Dosage: 73 MG, EVERY 3 WK
     Route: 042
     Dates: start: 20230920, end: 20240104
  3. EPCORITAMAB [Suspect]
     Active Substance: EPCORITAMAB
     Indication: Diffuse large B-cell lymphoma
     Dosage: 48 MG, EVERY 3 WK, C1 (STEP-UP), CYCLES 2 - 4 (21-DAY CYCLE, WEEKLY DOSE), C5 - 8 (21-DAY CYCLE, EVE
     Route: 058
     Dates: start: 20230920, end: 20240219
  4. PREDNISONE [Suspect]
     Active Substance: PREDNISONE
     Indication: Diffuse large B-cell lymphoma
     Dosage: 100 MG C1-6, DAY 1-5, EVERY 1 DAYS
     Route: 048
     Dates: start: 20230920, end: 20240108
  5. RITUXIMAB [Suspect]
     Active Substance: RITUXIMAB
     Indication: Diffuse large B-cell lymphoma
     Dosage: 540 MG, EVERY 3 WK
     Route: 042
     Dates: start: 20230920, end: 20240104
  6. VINCRISTINE [Suspect]
     Active Substance: VINCRISTINE
     Indication: Diffuse large B-cell lymphoma
     Dosage: 2 MG, EVERY 3 WK
     Route: 042
     Dates: start: 20230920, end: 20240104
  7. Atolow [Concomitant]
     Indication: Hyperlipidaemia
     Dosage: 10 MG, EVERY 1 DAYS
     Route: 065
     Dates: start: 20231028

REACTIONS (2)
  - Acute myeloid leukaemia [Fatal]
  - Acute myeloid leukaemia [Recovered/Resolved]

NARRATIVE: CASE EVENT DATE: 20250216
